FAERS Safety Report 23832343 (Version 1)
Quarter: 2024Q2

REPORT INFORMATION
  Report Type: Spontaneous
  Country: US (occurrence: US)
  Receive Date: 20240508
  Receipt Date: 20240508
  Transmission Date: 20240715
  Serious: No
  Sender: FDA-Public Use
  Company Number: US-002147023-NVSC2024US092503

PATIENT
  Sex: Male

DRUGS (3)
  1. EVEROLIMUS [Suspect]
     Active Substance: EVEROLIMUS
     Indication: Product used for unknown indication
     Dosage: UNK
     Route: 065
     Dates: end: 20240410
  2. LENVIMA [Suspect]
     Active Substance: LENVATINIB
     Indication: Renal cell carcinoma
     Dosage: 18 MG, QD
     Route: 065
     Dates: start: 20240321
  3. LENVIMA [Suspect]
     Active Substance: LENVATINIB
     Dosage: 10 MG, QD
     Route: 065
     Dates: start: 20240410

REACTIONS (8)
  - Blood pressure increased [Unknown]
  - Peripheral coldness [Unknown]
  - Tachypnoea [Unknown]
  - Chills [Unknown]
  - Erythema [Unknown]
  - Pain [Unknown]
  - Asthenia [Unknown]
  - Decreased appetite [Unknown]
